FAERS Safety Report 15701630 (Version 1)
Quarter: 2018Q4

REPORT INFORMATION
  Report Type: Spontaneous
  Country: US (occurrence: US)
  Receive Date: 20181208
  Receipt Date: 20181208
  Transmission Date: 20190205
  Serious: Yes (Other)
  Sender: FDA-Public Use
  Company Number: US-ROCHE-2226962

PATIENT
  Sex: Female
  Weight: 113.5 kg

DRUGS (1)
  1. KLONOPIN [Suspect]
     Active Substance: CLONAZEPAM
     Indication: PANIC ATTACK
     Route: 065

REACTIONS (3)
  - Fall [Recovering/Resolving]
  - Bedridden [Not Recovered/Not Resolved]
  - Joint injury [Recovering/Resolving]

NARRATIVE: CASE EVENT DATE: 2018
